FAERS Safety Report 19064622 (Version 1)
Quarter: 2021Q1

REPORT INFORMATION
  Report Type: Report from Study
  Country: BR (occurrence: BR)
  Receive Date: 20210326
  Receipt Date: 20210326
  Transmission Date: 20210420
  Serious: Yes (Other)
  Sender: FDA-Public Use
  Company Number: BR-UCBSA-2021013791

PATIENT
  Sex: Female
  Weight: 80 kg

DRUGS (4)
  1. GLIFAGE [Concomitant]
     Active Substance: METFORMIN HYDROCHLORIDE
     Indication: DIABETES MELLITUS
     Dosage: 2 TABLETS DAILY ABOUT 10 YEARS
     Route: 048
     Dates: start: 2011
  2. CHLOROTHIAZIDE. [Concomitant]
     Active Substance: CHLOROTHIAZIDE
     Indication: HYPERTENSION
     Dosage: 2 TABLETS DAILY ABOUT 10 YEARS
     Route: 048
     Dates: start: 2011
  3. LOSARTANA POTASSICA [Concomitant]
     Active Substance: LOSARTAN
     Indication: HYPERTENSION
     Dosage: 2 TABLETS DAILY ABOUT 10 YEARS
     Route: 048
     Dates: start: 2011
  4. CERTOLIZUMAB PEGOL RA [Suspect]
     Active Substance: CERTOLIZUMAB PEGOL
     Indication: RHEUMATOID ARTHRITIS
     Dosage: 200 MILLIGRAM, EV 15 DAYS
     Route: 058
     Dates: start: 202101

REACTIONS (9)
  - Intentional product misuse [Unknown]
  - Hyperaemia [Unknown]
  - Alopecia [Recovered/Resolved]
  - Vomiting [Not Recovered/Not Resolved]
  - Diarrhoea [Not Recovered/Not Resolved]
  - Blister [Unknown]
  - Eye swelling [Recovering/Resolving]
  - Erythema [Unknown]
  - Eye irritation [Recovering/Resolving]
